FAERS Safety Report 7356089-3 (Version None)
Quarter: 2011Q1

REPORT INFORMATION
  Report Type: 
  Country: None (occurrence: None)
  Receive Date: 20110316
  Receipt Date: 20110210
  Transmission Date: 20110831
  Serious: Yes (Hospitalization, Other)
  Sender: FDA-Public Use
  Company Number: US-BAYER-201040145NA

PATIENT
  Sex: Female
  Weight: 66.939 kg

DRUGS (5)
  1. UNCODEABLE ^UNCLASSIFIABLE^ [Concomitant]
     Indication: UNEVALUABLE EVENT
     Dosage: 20 MG, BID
     Route: 048
  2. ALEVE (CAPLET) [Concomitant]
     Indication: PAIN
     Dosage: UNK UNK, PRN
     Route: 048
  3. YAZ [Suspect]
     Indication: PRODUCT USED FOR UNKNOWN INDICATION
     Dosage: UNK UNK, QD
     Route: 048
     Dates: start: 20070101
  4. YASMIN [Suspect]
     Indication: PRODUCT USED FOR UNKNOWN INDICATION
     Route: 048
     Dates: start: 20100101
  5. KLONOPIN [Concomitant]
     Indication: ANXIETY
     Dosage: 0.5 MG, HS
     Route: 048

REACTIONS (4)
  - CHOLELITHIASIS [None]
  - CHOLECYSTITIS CHRONIC [None]
  - GALLBLADDER CHOLESTEROLOSIS [None]
  - GALLBLADDER INJURY [None]
